FAERS Safety Report 6914464-2 (Version None)
Quarter: 2010Q3

REPORT INFORMATION
  Report Type: 
  Country: None (occurrence: None)
  Receive Date: 20100809
  Receipt Date: 20100802
  Transmission Date: 20110219
  Serious: Yes (Other)
  Sender: FDA-Public Use
  Company Number: US-PFIZER INC-2010097507

PATIENT
  Sex: Male
  Weight: 79.365 kg

DRUGS (1)
  1. LIPITOR [Suspect]
     Indication: BLOOD CHOLESTEROL INCREASED
     Dosage: UNK
     Route: 048
     Dates: start: 20070101

REACTIONS (4)
  - ALPHA 1 FOETOPROTEIN INCREASED [None]
  - AMMONIA INCREASED [None]
  - CARDIAC DISORDER [None]
  - PERIPHERAL ARTERIAL OCCLUSIVE DISEASE [None]
